FAERS Safety Report 10917944 (Version 1)
Quarter: 2015Q1

REPORT INFORMATION
  Report Type: Spontaneous
  Country: US (occurrence: US)
  Receive Date: 20150316
  Receipt Date: 20150316
  Transmission Date: 20150721
  Serious: No
  Sender: FDA-Public Use
  Company Number: US-PFIZER INC-2015090712

PATIENT
  Age: 56 Year
  Sex: Male
  Weight: 113 kg

DRUGS (1)
  1. VIAGRA [Suspect]
     Active Substance: SILDENAFIL CITRATE
     Indication: RADICAL PROSTATECTOMY
     Dosage: 100 MG, 1X/DAY
     Route: 048
     Dates: start: 201502, end: 2015

REACTIONS (3)
  - Tinnitus [Not Recovered/Not Resolved]
  - Head discomfort [Recovered/Resolved]
  - Headache [Recovered/Resolved]

NARRATIVE: CASE EVENT DATE: 201502
